FAERS Safety Report 25100750 (Version 1)
Quarter: 2025Q1

REPORT INFORMATION
  Report Type: Report from Study
  Country: PH (occurrence: PH)
  Receive Date: 20250320
  Receipt Date: 20250320
  Transmission Date: 20250408
  Serious: Yes (Death, Hospitalization, Other)
  Sender: TAKEDA
  Company Number: PH-TAKEDA-2025TUS019542

PATIENT
  Age: 71 Year
  Sex: Female

DRUGS (1)
  1. BRIGATINIB [Suspect]
     Active Substance: BRIGATINIB
     Indication: Non-small cell lung cancer

REACTIONS (2)
  - Death [Fatal]
  - Hypertension [Not Recovered/Not Resolved]

NARRATIVE: CASE EVENT DATE: 20250310
